FAERS Safety Report 21002476 (Version 1)
Quarter: 2022Q2

REPORT INFORMATION
  Report Type: Other
  Country: JP (occurrence: JP)
  Receive Date: 20220624
  Receipt Date: 20220624
  Transmission Date: 20220721
  Serious: Yes (Death)
  Sender: FDA-Public Use
  Company Number: JP-CHUGAI-2022023346

PATIENT
  Age: 56 Year
  Sex: Male

DRUGS (5)
  1. AVASTIN [Suspect]
     Active Substance: BEVACIZUMAB
     Indication: Small intestine carcinoma
     Route: 041
  2. FLUOROURACIL [Concomitant]
     Active Substance: FLUOROURACIL
     Indication: Small intestine carcinoma
     Route: 040
  3. FLUOROURACIL [Concomitant]
     Active Substance: FLUOROURACIL
     Route: 041
  4. LEVOLEUCOVORIN CALCIUM [Concomitant]
     Active Substance: LEVOLEUCOVORIN CALCIUM
     Indication: Small intestine carcinoma
     Route: 041
  5. IRINOTECAN HYDROCHLORIDE [Concomitant]
     Active Substance: IRINOTECAN HYDROCHLORIDE
     Indication: Small intestine carcinoma
     Route: 041

REACTIONS (2)
  - Small intestine carcinoma [Fatal]
  - Off label use [Unknown]
